FAERS Safety Report 20911819 (Version 1)
Quarter: 2022Q2

REPORT INFORMATION
  Report Type: Spontaneous
  Country: CA (occurrence: CA)
  Receive Date: 20220603
  Receipt Date: 20220603
  Transmission Date: 20220721
  Serious: Yes (Death)
  Sender: FDA-Public Use
  Company Number: CA-PFIZER INC-202101252803

PATIENT
  Age: 77 Year
  Sex: Female

DRUGS (2)
  1. RUXIENCE [Suspect]
     Active Substance: RITUXIMAB-PVVR
     Indication: Myopathy
     Dosage: 1000 MG (DAY) 255 MINUTE INFUSION (4.25HRS);
     Route: 042
  2. RUXIENCE [Suspect]
     Active Substance: RITUXIMAB-PVVR
     Dosage: 1000 MG (DAY 15); 195 MINUTE INFUSION (3.25HRS)

REACTIONS (2)
  - Death [Fatal]
  - Off label use [Unknown]
